FAERS Safety Report 4561588-3 (Version None)
Quarter: 2005Q1

REPORT INFORMATION
  Report Type: 
  Country: None (occurrence: None)
  Receive Date: 20050126
  Receipt Date: 20040819
  Transmission Date: 20050727
  Serious: Yes (Other)
  Sender: FDA-Public Use
  Company Number: US-GLAXOSMITHKLINE-A0523745A

PATIENT
  Age: 10 Year
  Sex: Male

DRUGS (1)
  1. PAXIL [Suspect]
     Indication: POST-TRAUMATIC STRESS DISORDER
     Route: 048
     Dates: start: 20030227

REACTIONS (16)
  - ABDOMINAL PAIN UPPER [None]
  - AGGRESSION [None]
  - ANOREXIA [None]
  - DYSKINESIA [None]
  - HALLUCINATION [None]
  - HEAD BANGING [None]
  - IMPULSIVE BEHAVIOUR [None]
  - INJURY [None]
  - NIGHTMARE [None]
  - OBSESSIVE THOUGHTS [None]
  - OVERDOSE [None]
  - PANIC ATTACK [None]
  - PARANOIA [None]
  - PERSONALITY CHANGE [None]
  - SELF MUTILATION [None]
  - SUICIDAL IDEATION [None]
